FAERS Safety Report 5519615-2 (Version None)
Quarter: 2007Q4

REPORT INFORMATION
  Report Type: 
  Country: None (occurrence: None)
  Receive Date: 20071114
  Receipt Date: 20071031
  Transmission Date: 20080405
  Serious: Yes (Other)
  Sender: FDA-Public Use
  Company Number: 2007BI023523

PATIENT
  Age: 59 Year
  Sex: Female

DRUGS (3)
  1. ZEVALIN [Suspect]
     Indication: CENTRAL NERVOUS SYSTEM LYMPHOMA
     Dosage: 5.2 MCI;IV
     Route: 042
  2. ZEVALIN [Suspect]
     Indication: CENTRAL NERVOUS SYSTEM LYMPHOMA
     Dosage: 23.1 MCI;IV
     Route: 042
  3. RITUXIMAB [Concomitant]

REACTIONS (6)
  - ATAXIA [None]
  - CENTRAL NERVOUS SYSTEM LYMPHOMA [None]
  - COGNITIVE DISORDER [None]
  - DRUG TOXICITY [None]
  - INCONTINENCE [None]
  - MALIGNANT NEOPLASM PROGRESSION [None]
